FAERS Safety Report 8496662-2 (Version None)
Quarter: 2012Q3

REPORT INFORMATION
  Report Type: 
  Country: None (occurrence: None)
  Receive Date: 20120709
  Receipt Date: 20120702
  Transmission Date: 20120928
  Serious: Yes (Hospitalization)
  Sender: FDA-Public Use
  Company Number: US-CELGENEUS-163-21880-12070240

PATIENT
  Sex: Male

DRUGS (11)
  1. ASPIRIN [Concomitant]
     Route: 065
  2. HYDROCHLOROTHIAZIDE [Concomitant]
     Route: 065
  3. JANUVIA [Concomitant]
     Route: 065
  4. AMLODIPINE [Concomitant]
     Route: 065
  5. REVLIMID [Suspect]
     Indication: MULTIPLE MYELOMA
     Dosage: 25 MILLIGRAM
     Route: 048
     Dates: start: 20120401
  6. FOSINOPRIL SODIUM [Concomitant]
     Route: 065
  7. METFORMIN HCL [Concomitant]
     Route: 065
  8. HYDRALAZINE HYDROCHLORIDE [Concomitant]
     Route: 065
  9. GLIMEPIRIDE [Concomitant]
     Route: 065
  10. MONOPRIL [Concomitant]
     Route: 065
  11. TOPROL-XL [Concomitant]
     Route: 065

REACTIONS (5)
  - CONVULSION [None]
  - COUGH [None]
  - DYSPNOEA [None]
  - PRURITUS GENERALISED [None]
  - DRY SKIN [None]
